FAERS Safety Report 8916652 (Version 1)
Quarter: 2012Q4

REPORT INFORMATION
  Report Type: 
  Country: JP (occurrence: JP)
  Receive Date: 20121120
  Receipt Date: 20121120
  Transmission Date: 20130627
  Serious: Yes (Death, Life-Threatening)
  Sender: FDA-Public Use
  Company Number: JP-ROCHE-1099405

PATIENT
  Age: 79 Year
  Sex: Male

DRUGS (4)
  1. ACTIVACIN [Suspect]
     Indication: CEREBRAL INFARCTION
     Route: 042
     Dates: start: 20120717, end: 20120717
  2. RADICUT [Concomitant]
     Route: 041
     Dates: start: 20120717, end: 20120719
  3. GLYCEOL [Concomitant]
     Route: 065
     Dates: start: 20120718, end: 20120720
  4. D-MANNITOL [Concomitant]
     Route: 065
     Dates: start: 20120719, end: 20120720

REACTIONS (2)
  - Cerebral infarction [Fatal]
  - Haemorrhage intracranial [Unknown]
